FAERS Safety Report 10709877 (Version 6)
Quarter: 2015Q2

REPORT INFORMATION
  Report Type: Spontaneous
  Country: JP (occurrence: JP)
  Receive Date: 20150114
  Receipt Date: 20150619
  Transmission Date: 20150821
  Serious: Yes (Hospitalization)
  Sender: FDA-Public Use
  Company Number: JP-NOVOPROD-434779

PATIENT
  Age: 11 Year
  Sex: Male
  Weight: 37 kg

DRUGS (4)
  1. NORDITROPIN [Suspect]
     Active Substance: SOMATROPIN
     Indication: GROWTH HORMONE DEFICIENCY
     Dosage: 0.9 MG, QD
     Route: 058
     Dates: start: 20130214, end: 201402
  2. LEUPLIN [Suspect]
     Active Substance: LEUPROLIDE ACETATE
     Indication: PRECOCIOUS PUBERTY
     Dosage: 2.7 MG, QD
     Route: 058
     Dates: start: 201302, end: 201407
  3. GENTACIN [Concomitant]
     Active Substance: GENTAMICIN SULFATE
     Dosage: UNK
     Route: 065
     Dates: start: 20130801, end: 201309
  4. STERICLON [Concomitant]
     Indication: ECZEMA
     Dosage: UNK
     Route: 065
     Dates: start: 20130801, end: 201309

REACTIONS (2)
  - Metastases to central nervous system [Not Recovered/Not Resolved]
  - Neoplasm recurrence [Not Recovered/Not Resolved]

NARRATIVE: CASE EVENT DATE: 2014
